FAERS Safety Report 7017829-6 (Version None)
Quarter: 2010Q3

REPORT INFORMATION
  Report Type: 
  Country: None (occurrence: None)
  Receive Date: 20100909
  Receipt Date: 20100625
  Transmission Date: 20110219
  Serious: No
  Sender: FDA-Public Use
  Company Number: 2010SP035998

PATIENT
  Age: 18 Year
  Sex: Female

DRUGS (1)
  1. SAPHRIS [Suspect]
     Indication: SCHIZOPHRENIA
     Dosage: 5 MG;SL
     Route: 060
     Dates: start: 20100617, end: 20100618

REACTIONS (2)
  - JOINT STIFFNESS [None]
  - MYALGIA [None]
